FAERS Safety Report 24141434 (Version 1)
Quarter: 2024Q3

REPORT INFORMATION
  Report Type: Spontaneous
  Country: SI (occurrence: SI)
  Receive Date: 20240726
  Receipt Date: 20240726
  Transmission Date: 20241017
  Serious: Yes (Hospitalization, Other)
  Sender: RANBAXY
  Company Number: SI-SUN PHARMACEUTICAL INDUSTRIES LTD-2024R1-458963

PATIENT
  Age: 75 Year
  Sex: Male

DRUGS (2)
  1. LOPERAMIDE [Suspect]
     Active Substance: LOPERAMIDE
     Indication: Diarrhoea
     Dosage: UNK
     Route: 065
  2. METHYLPREDNISOLONE [Suspect]
     Active Substance: METHYLPREDNISOLONE
     Indication: Diarrhoea
     Dosage: 1 MILLIGRAM/KILOGRAM, QD
     Route: 048

REACTIONS (2)
  - Condition aggravated [Unknown]
  - Disease recurrence [Unknown]
